FAERS Safety Report 18795638 (Version 2)
Quarter: 2021Q1

REPORT INFORMATION
  Report Type: Spontaneous
  Country: US (occurrence: US)
  Receive Date: 20210127
  Receipt Date: 20210303
  Transmission Date: 20210419
  Serious: No
  Sender: FDA-Public Use
  Company Number: US-ASTRAZENECA-2020SF76352

PATIENT
  Age: 857 Month
  Sex: Male
  Weight: 69.9 kg

DRUGS (2)
  1. SYMBICORT [Suspect]
     Active Substance: BUDESONIDE\FORMOTEROL FUMARATE DIHYDRATE
     Indication: ASTHMA
     Dosage: 160/4.5 MCG 120 INHALATIONS, 1 PUFF TWICE DAILY.
     Route: 055
     Dates: start: 2020
  2. SYMBICORT [Suspect]
     Active Substance: BUDESONIDE\FORMOTEROL FUMARATE DIHYDRATE
     Indication: CHRONIC OBSTRUCTIVE PULMONARY DISEASE
     Dosage: 160/4.5 MCG 120 INHALATIONS, 1 PUFF TWICE DAILY.
     Route: 055
     Dates: start: 2020

REACTIONS (4)
  - Drug delivery system issue [Unknown]
  - Drug ineffective [Unknown]
  - Intentional device misuse [Unknown]
  - Chest discomfort [Unknown]

NARRATIVE: CASE EVENT DATE: 202012
